FAERS Safety Report 18427424 (Version 2)
Quarter: 2020Q4

REPORT INFORMATION
  Report Type: Report from Study
  Country: JP (occurrence: JP)
  Receive Date: 20201026
  Receipt Date: 20201214
  Transmission Date: 20210114
  Serious: Yes (Death, Other)
  Sender: FDA-Public Use
  Company Number: JP-KYOWAKIRIN-2017AKK000310

PATIENT

DRUGS (36)
  1. PIRARUBICIN HYDROCHLORIDE [Concomitant]
     Active Substance: PIRARUBICIN HYDROCHLORIDE
     Indication: ADULT T-CELL LYMPHOMA/LEUKAEMIA
     Dosage: UNK
     Route: 065
  2. MAGMITT [Concomitant]
     Active Substance: MAGNESIUM OXIDE
     Dosage: UNK
     Route: 048
  3. CHLORPHENIRAMINE MALEATE. [Concomitant]
     Active Substance: CHLORPHENIRAMINE MALEATE
     Dosage: UNK, QD
     Route: 065
     Dates: start: 20160711, end: 20160711
  4. FILGRASTIM [Concomitant]
     Active Substance: FILGRASTIM
     Dosage: UNK
     Route: 065
     Dates: start: 20160728, end: 20160801
  5. MOGAMULIZUMAB [Suspect]
     Active Substance: MOGAMULIZUMAB
     Indication: ADULT T-CELL LYMPHOMA/LEUKAEMIA
     Dosage: 1 MG/KG, QD
     Route: 041
     Dates: start: 20160711, end: 20160711
  6. PREDNISOLONE. [Concomitant]
     Active Substance: PREDNISOLONE
     Indication: ADULT T-CELL LYMPHOMA/LEUKAEMIA
     Dosage: UNK
     Route: 065
  7. AMLODIPINE                         /00972402/ [Concomitant]
     Active Substance: AMLODIPINE BESYLATE
     Dosage: UNK
     Route: 048
  8. CALONAL [Concomitant]
     Active Substance: ACETAMINOPHEN
     Indication: PAIN
     Dosage: UNK
     Route: 048
  9. FILGRASTIM [Concomitant]
     Active Substance: FILGRASTIM
     Dosage: UNK
     Route: 065
     Dates: start: 20160707, end: 20160708
  10. ACETAMINOPHEN. [Concomitant]
     Active Substance: ACETAMINOPHEN
     Dosage: UNK, QD
     Route: 065
     Dates: start: 20160711, end: 20160711
  11. ACETAMINOPHEN. [Concomitant]
     Active Substance: ACETAMINOPHEN
     Dosage: UNK, QD
     Route: 065
     Dates: start: 20160726, end: 20160726
  12. SOLU-CORTEF [Concomitant]
     Active Substance: HYDROCORTISONE SODIUM SUCCINATE
     Indication: PROPHYLAXIS
     Dosage: 100 MG, 1X/2 WEEKS
     Route: 065
     Dates: start: 20160531, end: 20160628
  13. VINCRISTINE SULPHATE [Concomitant]
     Active Substance: VINCRISTINE SULFATE
     Indication: ADULT T-CELL LYMPHOMA/LEUKAEMIA
     Dosage: UNK
     Route: 065
  14. SENNOSIDE                          /00571901/ [Concomitant]
     Active Substance: SENNOSIDES A AND B
     Dosage: UNK
     Route: 048
  15. FEBURIC [Concomitant]
     Active Substance: FEBUXOSTAT
     Indication: PROPHYLAXIS
     Dosage: UNK
     Route: 048
  16. SOLU-CORTEF [Concomitant]
     Active Substance: HYDROCORTISONE SODIUM SUCCINATE
     Dosage: 100 MG, QD
     Route: 065
     Dates: start: 20160808, end: 20160808
  17. CYCLOPHOSPHAMIDE. [Concomitant]
     Active Substance: CYCLOPHOSPHAMIDE
     Indication: ADULT T-CELL LYMPHOMA/LEUKAEMIA
     Dosage: UNK
     Route: 065
  18. ACELIO [Concomitant]
     Active Substance: ACETAMINOPHEN
     Dosage: UNK
     Route: 065
     Dates: start: 20160724, end: 20160724
  19. MOGAMULIZUMAB [Suspect]
     Active Substance: MOGAMULIZUMAB
     Dosage: 1 MG/KG, 1X/2 WEEKS
     Route: 041
     Dates: start: 20160531, end: 20160628
  20. CHLORPHENIRAMINE MALEATE. [Concomitant]
     Active Substance: CHLORPHENIRAMINE MALEATE
     Dosage: UNK, QD
     Route: 048
     Dates: start: 20160808, end: 20160808
  21. CLOPIDOGREL [Concomitant]
     Active Substance: CLOPIDOGREL BISULFATE
     Dosage: UNK
     Route: 048
  22. LANSOPRAZOLE. [Concomitant]
     Active Substance: LANSOPRAZOLE
     Indication: PROPHYLAXIS
     Dosage: UNK
     Route: 048
  23. FLUCONAZOLE. [Concomitant]
     Active Substance: FLUCONAZOLE
     Dosage: UNK
     Route: 048
     Dates: start: 20160630, end: 20160706
  24. CHLORPHENIRAMINE MALEATE. [Concomitant]
     Active Substance: CHLORPHENIRAMINE MALEATE
     Indication: PROPHYLAXIS
     Dosage: UNK, 1X/2 WEEKS
     Route: 065
     Dates: start: 20160531, end: 20160628
  25. DAIPHEN [Concomitant]
     Active Substance: SULFAMETHOXAZOLE\TRIMETHOPRIM
     Indication: INFECTION PROPHYLAXIS
     Dosage: UNK
     Route: 048
     Dates: start: 20160423
  26. FILGRASTIM [Concomitant]
     Active Substance: FILGRASTIM
     Indication: PROPHYLAXIS
     Dosage: UNK
     Route: 065
     Dates: start: 20160616, end: 20160617
  27. CEFAMEZIN                          /00288502/ [Concomitant]
     Active Substance: CEFAZOLIN
     Dosage: UNK
     Route: 065
     Dates: start: 20160724, end: 20160803
  28. MOGAMULIZUMAB [Suspect]
     Active Substance: MOGAMULIZUMAB
     Dosage: 1 MG/KG, QD
     Route: 041
     Dates: start: 20160726, end: 20160726
  29. MOGAMULIZUMAB [Suspect]
     Active Substance: MOGAMULIZUMAB
     Dosage: 1 MG/KG, QD
     Route: 041
     Dates: start: 20160808, end: 20160808
  30. ACETAMINOPHEN. [Concomitant]
     Active Substance: ACETAMINOPHEN
     Indication: PROPHYLAXIS
     Dosage: UNK, 1X/2 WEEKS
     Route: 065
     Dates: start: 20160531, end: 20160628
  31. ACETAMINOPHEN. [Concomitant]
     Active Substance: ACETAMINOPHEN
     Dosage: UNK, QD
     Route: 065
     Dates: start: 20160808, end: 20160808
  32. SOLU-CORTEF [Concomitant]
     Active Substance: HYDROCORTISONE SODIUM SUCCINATE
     Dosage: 100 MG, QD
     Route: 065
     Dates: start: 20160711, end: 20160711
  33. SOLU-CORTEF [Concomitant]
     Active Substance: HYDROCORTISONE SODIUM SUCCINATE
     Dosage: 100 MG, QD
     Route: 065
     Dates: start: 20160726, end: 20160726
  34. FLUCONAZOLE. [Concomitant]
     Active Substance: FLUCONAZOLE
     Indication: INFECTION PROPHYLAXIS
     Dosage: UNK
     Route: 048
     Dates: start: 20160607, end: 20160613
  35. LAC-B [Concomitant]
     Active Substance: BIFIDOBACTERIUM SPP.
     Indication: FAECES SOFT
     Dosage: UNK
     Route: 048
     Dates: start: 20160514, end: 20160516
  36. CHLORPHENIRAMINE MALEATE. [Concomitant]
     Active Substance: CHLORPHENIRAMINE MALEATE
     Dosage: UNK, QD
     Route: 065
     Dates: start: 20160726, end: 20160726

REACTIONS (1)
  - Disease progression [Fatal]

NARRATIVE: CASE EVENT DATE: 20160724
